FAERS Safety Report 7314530-6 (Version None)
Quarter: 2011Q1

REPORT INFORMATION
  Report Type: 
  Country: None (occurrence: None)
  Receive Date: 20110225
  Receipt Date: 20100923
  Transmission Date: 20110831
  Serious: No
  Sender: FDA-Public Use
  Company Number: US-MYLANLABS-2010S1017505

PATIENT
  Age: 19 Year
  Sex: Female

DRUGS (3)
  1. AMNESTEEM [Suspect]
     Dates: start: 20100914, end: 20100901
  2. YASMIN [Concomitant]
  3. AMNESTEEM [Suspect]
     Indication: ACNE
     Dates: start: 20100623, end: 20100914

REACTIONS (1)
  - HEADACHE [None]
